FAERS Safety Report 5556996-8 (Version None)
Quarter: 2007Q4

REPORT INFORMATION
  Report Type: 
  Country: None (occurrence: None)
  Receive Date: 20071214
  Receipt Date: 20071204
  Transmission Date: 20080405
  Serious: Yes (Hospitalization)
  Sender: FDA-Public Use
  Company Number: US-KINGPHARMUSA00001-K200701564

PATIENT

DRUGS (10)
  1. ALTACE [Suspect]
     Indication: HYPERTENSION
     Route: 048
  2. KETOPROFEN [Suspect]
     Dosage: 150 MG, QD
     Route: 048
     Dates: start: 20070601, end: 20070601
  3. KETOPROFEN [Suspect]
     Dosage: 150 MG, QD
     Route: 048
     Dates: start: 20070701, end: 20070701
  4. KETOPROFEN [Suspect]
     Dosage: 150 MG, QD
     Route: 048
     Dates: start: 20070801, end: 20071013
  5. ALDALIX [Suspect]
     Route: 048
     Dates: end: 20071013
  6. KERLONE                            /00706301/ [Concomitant]
     Dosage: 20 MG, QD
     Route: 048
  7. AVANDAMET [Concomitant]
     Route: 048
     Dates: end: 20071019
  8. CRESTOR [Concomitant]
     Indication: HYPERLIPIDAEMIA
     Dosage: UNK, UNK
     Route: 048
  9. VASTAREL [Concomitant]
     Route: 048
     Dates: end: 20071019
  10. ACARBOSE [Concomitant]
     Dosage: 50 MG, UNK
     Route: 048

REACTIONS (7)
  - DEHYDRATION [None]
  - FALL [None]
  - FOOT FRACTURE [None]
  - GENERAL PHYSICAL CONDITION ABNORMAL [None]
  - HYPERKALAEMIA [None]
  - PAIN IN EXTREMITY [None]
  - RENAL FAILURE ACUTE [None]
